FAERS Safety Report 8993468 (Version 1)
Quarter: 2013Q1

REPORT INFORMATION
  Report Type: Spontaneous
  Country: FR (occurrence: FR)
  Receive Date: 20130102
  Receipt Date: 20130102
  Transmission Date: 20140127
  Serious: Yes (Hospitalization)
  Sender: FDA-Public Use
  Company Number: FR-TEVA-377377ISR

PATIENT
  Age: 60 None
  Sex: Male

DRUGS (7)
  1. OXALIPLATINE [Suspect]
     Indication: HEPATIC CANCER
     Dosage: 1 DF = 150 MG IN ONE INTAKE
     Route: 042
     Dates: start: 20120702, end: 20120910
  2. GEMCITABINE [Suspect]
     Indication: HEPATIC CANCER
     Dosage: 1DF = 1500 MG IN ONE INTAKE
     Route: 041
     Dates: start: 20120702, end: 20120910
  3. STAGID [Concomitant]
     Dosage: 2100 MILLIGRAM DAILY;
     Route: 048
     Dates: start: 2001, end: 20120915
  4. COVERSYL [Concomitant]
     Dosage: 10 MILLIGRAM DAILY;
     Route: 048
     Dates: start: 20110201
  5. KARDEGIC [Concomitant]
     Dosage: 75 MILLIGRAM DAILY;
     Route: 048
  6. IPERTEN [Concomitant]
     Dosage: 20 MILLIGRAM DAILY;
     Route: 048
  7. INSULINE [Concomitant]

REACTIONS (8)
  - Lung disorder [Recovered/Resolved]
  - Neutropenia [Recovered/Resolved]
  - Diarrhoea [Recovered/Resolved]
  - Vomiting [Recovered/Resolved]
  - Haematemesis [Recovered/Resolved]
  - Cough [Unknown]
  - Pyrexia [Recovered/Resolved]
  - Asthenia [Recovered/Resolved]
